FAERS Safety Report 11634403 (Version 2)
Quarter: 2015Q4

REPORT INFORMATION
  Report Type: Spontaneous
  Country: US (occurrence: US)
  Receive Date: 20151015
  Receipt Date: 20151016
  Transmission Date: 20160304
  Serious: No
  Sender: FDA-Public Use
  Company Number: US-TEVA-600964USA

PATIENT
  Sex: Female
  Weight: 53.12 kg

DRUGS (1)
  1. COPAXONE [Suspect]
     Active Substance: GLATIRAMER ACETATE
     Indication: MULTIPLE SCLEROSIS
     Dates: start: 2014

REACTIONS (4)
  - Body height decreased [Unknown]
  - Injection site pain [Recovered/Resolved]
  - Arthropod bite [Recovered/Resolved]
  - Urticaria [Recovered/Resolved]
